FAERS Safety Report 9371260 (Version 1)
Quarter: 2013Q2

REPORT INFORMATION
  Report Type: Spontaneous
  Country: SE (occurrence: SE)
  Receive Date: 20130627
  Receipt Date: 20130627
  Transmission Date: 20140414
  Serious: Yes (Other)
  Sender: FDA-Public Use
  Company Number: SE-JNJFOC-20130612094

PATIENT
  Age: 3 Year
  Sex: Female

DRUGS (1)
  1. TOPIMAX [Suspect]
     Indication: EPILEPSY
     Dosage: HALF A CAPSULE PER DAY
     Route: 065

REACTIONS (3)
  - Drug ineffective [Unknown]
  - Wrong technique in drug usage process [Unknown]
  - Liver function test abnormal [Unknown]
